FAERS Safety Report 14013981 (Version 1)
Quarter: 2017Q3

REPORT INFORMATION
  Report Type: Spontaneous
  Country: US (occurrence: US)
  Receive Date: 20170926
  Receipt Date: 20170926
  Transmission Date: 20171128
  Serious: Yes (Other)
  Sender: FDA-Public Use
  Company Number: US-BAXTER-2017BAX033629

PATIENT
  Age: 45 Year
  Sex: Male

DRUGS (1)
  1. HEPARIN SODIUM AND SODIUM CHLORIDE [Suspect]
     Active Substance: HEPARIN SODIUM
     Indication: THERAPEUTIC EMBOLISATION
     Dosage: 2 BAGS, INFUSION.
     Route: 042
     Dates: start: 20170913

REACTIONS (4)
  - Device related thrombosis [Unknown]
  - Hemiparesis [Unknown]
  - Cerebral artery thrombosis [Unknown]
  - Embolic stroke [Unknown]

NARRATIVE: CASE EVENT DATE: 20170913
